FAERS Safety Report 9011300 (Version 1)
Quarter: 2013Q1

REPORT INFORMATION
  Report Type: Spontaneous
  Country: CN (occurrence: CN)
  Receive Date: 20130109
  Receipt Date: 20130109
  Transmission Date: 20140127
  Serious: Yes (Other)
  Sender: FDA-Public Use
  Company Number: CN-GILEAD-2013-0067240

PATIENT
  Age: 40 Year
  Sex: Female

DRUGS (4)
  1. VIREAD [Suspect]
     Indication: HIV INFECTION
     Dosage: 0.3 G, QD
     Route: 048
     Dates: start: 20111217
  2. ZIDOVUDINE [Suspect]
     Indication: HIV INFECTION
     Dosage: 0.3 G, QD
     Route: 048
     Dates: start: 20111017, end: 20111217
  3. EPIVIR [Concomitant]
     Indication: HIV INFECTION
     Dosage: 0.3 G, QD
     Route: 048
     Dates: start: 20060106
  4. STOCRIN [Concomitant]
     Indication: HIV INFECTION
     Dosage: 0.6 G, QD
     Route: 048
     Dates: start: 20060106

REACTIONS (1)
  - Anaemia [Not Recovered/Not Resolved]
